FAERS Safety Report 7957836-X (Version None)
Quarter: 2011Q4

REPORT INFORMATION
  Report Type: 
  Country: None (occurrence: None)
  Receive Date: 20111205
  Receipt Date: 20111125
  Transmission Date: 20120403
  Serious: Yes (Other)
  Sender: FDA-Public Use
  Company Number: US-BAYER-2011-033901

PATIENT
  Age: 26 Year
  Sex: Female
  Weight: 95.238 kg

DRUGS (6)
  1. CIPROFLOXACIN [Concomitant]
     Indication: URINARY TRACT INFECTION
  2. IBUPROFEN (ADVIL) [Concomitant]
     Indication: HEADACHE
  3. UNCODEABLE ^UNCLASSIFIABLE^ [Concomitant]
     Indication: HEADACHE
  4. YAZ [Suspect]
     Indication: CONTRACEPTION
  5. SYNTHROID [Concomitant]
     Indication: HYPOTHYROIDISM
     Dosage: UNK
     Dates: start: 20060101
  6. MOTRIN [Concomitant]
     Indication: HEADACHE

REACTIONS (7)
  - PAIN [None]
  - DYSPAREUNIA [None]
  - INJURY [None]
  - CHOLELITHIASIS [None]
  - ANXIETY [None]
  - ANHEDONIA [None]
  - HEADACHE [None]
